FAERS Safety Report 8392471-3 (Version None)
Quarter: 2012Q2

REPORT INFORMATION
  Report Type: 
  Country: None (occurrence: None)
  Receive Date: 20120529
  Receipt Date: 20120521
  Transmission Date: 20120825
  Serious: Yes (Hospitalization, Other)
  Sender: FDA-Public Use
  Company Number: US-PFIZER INC-2012127108

PATIENT
  Sex: Female

DRUGS (4)
  1. NEURONTIN [Concomitant]
  2. PERCOCET [Concomitant]
  3. MS CONTIN [Suspect]
     Dosage: 30 MG, 2X/DAY
     Route: 048
  4. REVLIMID [Suspect]
     Indication: MULTIPLE MYELOMA
     Dosage: 5 MG, 1X/DAY
     Route: 048
     Dates: start: 20100824

REACTIONS (5)
  - GAIT DISTURBANCE [None]
  - INCORRECT DOSE ADMINISTERED [None]
  - HALLUCINATION [None]
  - ASTHENIA [None]
  - CONFUSIONAL STATE [None]
